FAERS Safety Report 22237087 (Version 1)
Quarter: 2023Q2

REPORT INFORMATION
  Report Type: Spontaneous
  Country: US (occurrence: None)
  Receive Date: 20230421
  Receipt Date: 20230421
  Transmission Date: 20230722
  Serious: No
  Sender: FDA-Public Use
  Company Number: US-ROCHE-3283822

PATIENT
  Sex: Male
  Weight: 59.020 kg

DRUGS (1)
  1. ESBRIET [Suspect]
     Active Substance: PIRFENIDONE
     Indication: Product used for unknown indication
     Dosage: ONGOING: UNKNOWN
     Route: 048

REACTIONS (2)
  - Extra dose administered [Unknown]
  - No adverse event [Unknown]
